FAERS Safety Report 4488239-0 (Version None)
Quarter: 2004Q4

REPORT INFORMATION
  Report Type: 
  Country: None (occurrence: None)
  Receive Date: 20041028
  Receipt Date: 20040816
  Transmission Date: 20050328
  Serious: Yes (Other)
  Sender: FDA-Public Use
  Company Number: PHNU2004DE02883

PATIENT
  Sex: Female
  Weight: 71 kg

DRUGS (3)
  1. SANDIMMUNE [Suspect]
     Indication: SYSTEMIC LUPUS ERYTHEMATOSUS
     Dosage: 300 MG DAILY
     Route: 048
     Dates: start: 20010701, end: 20020101
  2. SANDIMMUNE [Suspect]
     Dosage: 50 MG, BID
     Route: 048
     Dates: start: 20020101
  3. DECORTIN [Concomitant]
     Indication: SYSTEMIC LUPUS ERYTHEMATOSUS

REACTIONS (3)
  - ABDOMINAL DISCOMFORT [None]
  - HEPATIC CONGESTION [None]
  - SENSATION OF PRESSURE [None]
